FAERS Safety Report 7368552-X (Version None)
Quarter: 2011Q1

REPORT INFORMATION
  Report Type: 
  Country: None (occurrence: None)
  Receive Date: 20110311
  Receipt Date: 20110303
  Transmission Date: 20110831
  Serious: Yes (Hospitalization)
  Sender: FDA-Public Use
  Company Number: 2011SP010158

PATIENT
  Age: 25 Year
  Sex: Male
  Weight: 68 kg

DRUGS (5)
  1. POSACONAZOLE [Suspect]
     Indication: BRONCHOPULMONARY ASPERGILLOSIS
     Dosage: 400 MG; BID; PO
     Route: 048
     Dates: start: 20110127
  2. BRENTUXIMAB VEDOTIN (MONOCLONAL ANTIBODIES) [Suspect]
     Indication: HODGKIN'S DISEASE
     Dosage: 112 MG;  INDRP
     Route: 041
     Dates: start: 20110126, end: 20110126
  3. FRAXIPARIN /01437702/ [Suspect]
  4. LISINOPRIL [Concomitant]
  5. METRONIDAZOLE [Concomitant]

REACTIONS (7)
  - VOMITING [None]
  - DRUG INTERACTION [None]
  - CONSTIPATION [None]
  - ILEUS [None]
  - NAUSEA [None]
  - FATIGUE [None]
  - ASTHENIA [None]
